FAERS Safety Report 9631487 (Version 1)
Quarter: 2013Q4

REPORT INFORMATION
  Report Type: Spontaneous
  Country: US (occurrence: None)
  Receive Date: 20131017
  Receipt Date: 20131017
  Transmission Date: 20140711
  Serious: Yes (Other)
  Sender: FDA-Public Use
  Company Number: None

PATIENT
  Age: 3 Year
  Sex: Female

DRUGS (1)
  1. OMNITROPE [Suspect]
     Indication: GONADAL DYSGENESIS
     Route: 058

REACTIONS (1)
  - Haematochezia [None]
